FAERS Safety Report 9636734 (Version 1)
Quarter: 2013Q4

REPORT INFORMATION
  Report Type: Report from Study
  Country: KR (occurrence: KR)
  Receive Date: 20131022
  Receipt Date: 20131022
  Transmission Date: 20140711
  Serious: Yes (Death, Other)
  Sender: FDA-Public Use
  Company Number: KR-ROCHE-1289719

PATIENT
  Sex: 0

DRUGS (7)
  1. CAPECITABINE [Suspect]
     Indication: GASTRIC CANCER
     Dosage: COHORT-1
     Route: 048
  2. CAPECITABINE [Suspect]
     Dosage: COHORT-2
     Route: 048
  3. SUNITINIB [Suspect]
     Indication: GASTRIC CANCER
     Dosage: COHORT-1
     Route: 048
  4. SUNITINIB [Suspect]
     Dosage: COHORT-1
     Route: 048
  5. OXALIPLATIN [Suspect]
     Indication: GASTRIC CANCER
     Route: 065
  6. CISPLATIN [Suspect]
     Indication: GASTRIC CANCER
     Dosage: COHORT 1 AND 2
     Route: 065
  7. CISPLATIN [Suspect]
     Dosage: COHORT -3
     Route: 065

REACTIONS (22)
  - Pneumonia [Fatal]
  - Sudden death [Fatal]
  - Febrile neutropenia [Unknown]
  - Diarrhoea [Unknown]
  - Abdominal pain [Unknown]
  - Fatigue [Unknown]
  - Decreased appetite [Unknown]
  - Hyperbilirubinaemia [Unknown]
  - Hypertension [Unknown]
  - Hypophosphataemia [Unknown]
  - Nausea [Unknown]
  - Pulmonary embolism [Unknown]
  - Stomatitis [Unknown]
  - Vomiting [Unknown]
  - Anaemia [Unknown]
  - Leukopenia [Unknown]
  - Lymphopenia [Unknown]
  - Neutropenia [Unknown]
  - Thrombocytopenia [Unknown]
  - Menorrhagia [Unknown]
  - Alanine aminotransferase increased [Unknown]
  - Hyponatraemia [Unknown]
